FAERS Safety Report 8962566 (Version 9)
Quarter: 2014Q2

REPORT INFORMATION
  Report Type: Report from Study
  Country: CA (occurrence: CA)
  Receive Date: 20121214
  Receipt Date: 20140602
  Transmission Date: 20141212
  Serious: Yes (Death, Hospitalization, Other)
  Sender: FDA-Public Use
  Company Number: PHHY2012CA114373

PATIENT
  Sex: Male

DRUGS (2)
  1. SANDOSTATIN LAR [Suspect]
     Indication: METASTATIC CARCINOID TUMOUR
     Dosage: 20 MG, EVERY FOUR WEEKS
     Route: 030
     Dates: start: 20120911, end: 20140430
  2. SPIRONOLACTONE [Concomitant]
     Dosage: 25 MG, QD

REACTIONS (15)
  - Metastatic carcinoid tumour [Fatal]
  - Visual acuity reduced [Unknown]
  - Confusional state [Unknown]
  - Weight decreased [Unknown]
  - Anxiety [Unknown]
  - Erythema [Unknown]
  - Burning sensation [Unknown]
  - Joint swelling [Unknown]
  - Blood pressure increased [Unknown]
  - Oedema peripheral [Recovered/Resolved]
  - Gait disturbance [Unknown]
  - Fatigue [Unknown]
  - Dyspnoea [Unknown]
  - Decreased appetite [Unknown]
  - Dyspnoea exertional [Not Recovered/Not Resolved]
